FAERS Safety Report 8423859-X (Version None)
Quarter: 2012Q2

REPORT INFORMATION
  Report Type: 
  Country: None (occurrence: None)
  Receive Date: 20120608
  Receipt Date: 20110527
  Transmission Date: 20120825
  Serious: No
  Sender: FDA-Public Use
  Company Number: US-ASTRAZENECA-2011SE33625

PATIENT
  Age: 83 Year
  Sex: Female

DRUGS (2)
  1. ATACAND [Suspect]
     Route: 048
  2. BENICAR [Suspect]

REACTIONS (5)
  - ASTHMA [None]
  - HYPERTENSION [None]
  - TREMOR [None]
  - MALAISE [None]
  - AGITATION [None]
